FAERS Safety Report 23086318 (Version 4)
Quarter: 2024Q1

REPORT INFORMATION
  Report Type: Spontaneous
  Country: JP (occurrence: JP)
  Receive Date: 20231019
  Receipt Date: 20240129
  Transmission Date: 20240410
  Serious: Yes (Other)
  Sender: FDA-Public Use
  Company Number: JP-BRISTOL-MYERS SQUIBB COMPANY-2023-146997

PATIENT
  Age: 60 Year
  Sex: Male

DRUGS (4)
  1. YERVOY [Suspect]
     Active Substance: IPILIMUMAB
     Indication: Lung carcinoma cell type unspecified stage IV
     Dosage: TOTAL OF 13 COURSES
     Route: 041
  2. OPDIVO [Suspect]
     Active Substance: NIVOLUMAB
     Indication: Lung carcinoma cell type unspecified stage IV
     Dosage: TOTAL OF 13 COURSES
  3. PEMETREXED [Concomitant]
     Active Substance: PEMETREXED
     Indication: Lung carcinoma cell type unspecified stage IV
     Dosage: TOTAL OF 13 COURSES
  4. CARBOPLATIN [Concomitant]
     Active Substance: CARBOPLATIN
     Indication: Lung carcinoma cell type unspecified stage IV
     Dosage: TOTAL OF 13 COURSES

REACTIONS (4)
  - Cardiac failure [Recovering/Resolving]
  - Hypothyroidism [Unknown]
  - Immune-mediated enterocolitis [Unknown]
  - Uveitis [Unknown]
